FAERS Safety Report 24600565 (Version 1)
Quarter: 2024Q4

REPORT INFORMATION
  Report Type: Spontaneous
  Country: US (occurrence: US)
  Receive Date: 20241110
  Receipt Date: 20241110
  Transmission Date: 20250115
  Serious: No
  Sender: SANOFI AVENTIS
  Company Number: US-SANOFI-02282483

PATIENT
  Age: 56 Year
  Sex: Female

DRUGS (1)
  1. DUPIXENT [Suspect]
     Active Substance: DUPILUMAB
     Indication: Benign familial pemphigus
     Dosage: 300 MG, QW
     Dates: start: 2023

REACTIONS (4)
  - Eye disorder [Unknown]
  - Off label use [Unknown]
  - Accidental exposure to product [Unknown]
  - Exposure via skin contact [Unknown]

NARRATIVE: CASE EVENT DATE: 20230101
